FAERS Safety Report 6999393-0 (Version None)
Quarter: 2010Q3

REPORT INFORMATION
  Report Type: 
  Country: None (occurrence: None)
  Receive Date: 20100920
  Receipt Date: 20091113
  Transmission Date: 20110219
  Serious: No
  Sender: FDA-Public Use
  Company Number: US-ASTRAZENECA-2009SE26369

PATIENT
  Age: 65 Year
  Sex: Female
  Weight: 96.2 kg

DRUGS (11)
  1. SEROQUEL XR [Suspect]
     Indication: ANXIETY
     Route: 048
     Dates: start: 20091002
  2. IMURAN [Concomitant]
  3. EXCELON PATCHES [Concomitant]
  4. CIPRO [Concomitant]
  5. FLEXERIL [Concomitant]
  6. PREMARIN [Concomitant]
  7. LASIX [Concomitant]
  8. PERCOCET [Concomitant]
  9. NEURONTON [Concomitant]
  10. AMBIEN [Concomitant]
  11. PAXIL [Concomitant]

REACTIONS (3)
  - CONFUSIONAL STATE [None]
  - FALL [None]
  - MUSCULAR WEAKNESS [None]
